FAERS Safety Report 8153589-3 (Version None)
Quarter: 2012Q1

REPORT INFORMATION
  Report Type: 
  Country: None (occurrence: None)
  Receive Date: 20120221
  Receipt Date: 20120215
  Transmission Date: 20120608
  Serious: Yes (Disabling)
  Sender: FDA-Public Use
  Company Number: GB-SANOFI-AVENTIS-2012SA010633

PATIENT
  Age: 29 Year
  Sex: Female

DRUGS (2)
  1. LANTUS [Suspect]
     Indication: TYPE 1 DIABETES MELLITUS
     Route: 065
     Dates: start: 20120201
  2. NOVORAPID [Concomitant]
     Dates: end: 20120201

REACTIONS (2)
  - ABASIA [None]
  - ERYTHEMA NODOSUM [None]
